FAERS Safety Report 7829513-7 (Version None)
Quarter: 2011Q4

REPORT INFORMATION
  Report Type: 
  Country: None (occurrence: None)
  Receive Date: 20111020
  Receipt Date: 20111007
  Transmission Date: 20120403
  Serious: Yes (Death)
  Sender: FDA-Public Use
  Company Number: JP-ROCHE-767821

PATIENT
  Sex: Male
  Weight: 50 kg

DRUGS (12)
  1. FLUOROURACIL [Concomitant]
     Dosage: DOSAGE IS UNCERTAIN.
     Route: 041
     Dates: start: 20110127, end: 20110217
  2. ENTERONON-R [Concomitant]
     Dosage: DOSAGE IS UNCERTAIN. FORM: POWDER
     Route: 048
  3. LOXONIN [Concomitant]
     Dosage: DOSAGE IS UNCERTAIN.
     Route: 048
  4. FLUOROURACIL [Concomitant]
     Dosage: DOSAGE IS UNCERTAIN.
     Route: 041
     Dates: start: 20110127, end: 20110201
  5. GRANISETRON [Concomitant]
     Dosage: DOSAGE IS UNCERTAIN.
     Route: 041
     Dates: start: 20110127, end: 20110217
  6. LEVOLEUCOVORIN CALCIUM [Concomitant]
     Indication: RECTAL CANCER METASTATIC
     Dosage: NAME: LEVOFOLINATE CALCIUM, DOSAGE IS UNCERTAIN.
     Route: 041
     Dates: start: 20110127, end: 20110217
  7. DEXAMETHASONE SODIUM PHOSPHATE [Concomitant]
     Dosage: DOSAGE IS UNCERTAIN.
     Route: 041
     Dates: start: 20110127, end: 20110217
  8. AVASTIN [Suspect]
     Indication: RECTAL CANCER METASTATIC
     Route: 041
     Dates: start: 20110127, end: 20110217
  9. LENDORMIN [Concomitant]
     Dosage: DOSAGE IS UNCERTAIN.
     Route: 048
  10. IRINOTECAN HCL [Suspect]
     Indication: RECTAL CANCER METASTATIC
     Route: 041
     Dates: start: 20110127, end: 20110217
  11. PYDOXAL [Concomitant]
     Dosage: DOSAGE IS UNCERTAIN.
     Route: 065
  12. RABEPRAZOLE SODIUM [Concomitant]
     Indication: GASTRITIS
     Dosage: DOSAGE IS UNCERTAIN.
     Route: 048

REACTIONS (8)
  - HYPERHIDROSIS [None]
  - DIARRHOEA [None]
  - C-REACTIVE PROTEIN INCREASED [None]
  - BLOOD PRESSURE INCREASED [None]
  - BLOOD CREATINE PHOSPHOKINASE INCREASED [None]
  - THROMBOTIC THROMBOCYTOPENIC PURPURA [None]
  - MALAISE [None]
  - WHITE BLOOD CELL COUNT INCREASED [None]
